FAERS Safety Report 17750462 (Version 1)
Quarter: 2020Q2

REPORT INFORMATION
  Report Type: Report from Study
  Country: CO (occurrence: CO)
  Receive Date: 20200506
  Receipt Date: 20200506
  Transmission Date: 20200714
  Serious: Yes (Other)
  Sender: FDA-Public Use
  Company Number: CO-ROCHE-2588384

PATIENT
  Age: 34 Year
  Sex: Female

DRUGS (6)
  1. PREDNISONE. [Concomitant]
     Active Substance: PREDNISONE
     Indication: DIFFUSE LARGE B-CELL LYMPHOMA
  2. CYCLOPHOSPHAMIDE. [Concomitant]
     Active Substance: CYCLOPHOSPHAMIDE
     Indication: DIFFUSE LARGE B-CELL LYMPHOMA
  3. RITUXIMAB. [Suspect]
     Active Substance: RITUXIMAB
     Indication: DIFFUSE LARGE B-CELL LYMPHOMA
     Route: 065
  4. DOXORUBICIN [Concomitant]
     Active Substance: DOXORUBICIN
     Indication: DIFFUSE LARGE B-CELL LYMPHOMA
  5. ETOPOSIDE. [Concomitant]
     Active Substance: ETOPOSIDE
     Indication: DIFFUSE LARGE B-CELL LYMPHOMA
  6. VINCRISTINE [Concomitant]
     Active Substance: VINCRISTINE
     Indication: DIFFUSE LARGE B-CELL LYMPHOMA

REACTIONS (19)
  - Gait inability [Unknown]
  - Hyperaesthesia teeth [Unknown]
  - Decreased immune responsiveness [Unknown]
  - Tooth discolouration [Unknown]
  - Chapped lips [Unknown]
  - Therapeutic response decreased [Unknown]
  - Asthenia [Unknown]
  - Stomatitis [Unknown]
  - Premature menopause [Unknown]
  - Dry skin [Unknown]
  - Decreased appetite [Unknown]
  - Cardiac disorder [Unknown]
  - Taste disorder [Unknown]
  - Diffuse large B-cell lymphoma refractory [Unknown]
  - Mucosal inflammation [Unknown]
  - Vomiting [Unknown]
  - Pain [Unknown]
  - Anaemia [Unknown]
  - Chills [Unknown]
